FAERS Safety Report 25415527 (Version 2)
Quarter: 2025Q2

REPORT INFORMATION
  Report Type: Spontaneous
  Country: IT (occurrence: IT)
  Receive Date: 20250610
  Receipt Date: 20250621
  Transmission Date: 20250717
  Serious: Yes (Other)
  Sender: TEVA
  Company Number: IT-TEVA-VS-3339182

PATIENT
  Age: 65 Year
  Sex: Male

DRUGS (6)
  1. LEVOFLOXACIN [Suspect]
     Active Substance: LEVOFLOXACIN
     Indication: Enterobacter infection
     Dosage: FOR SEVEN WEEKS
     Route: 048
     Dates: start: 2024
  2. MILTEFOSINE [Suspect]
     Active Substance: MILTEFOSINE
     Indication: Cutaneous leishmaniasis
     Dosage: FOR 21DAYS
     Route: 048
     Dates: start: 2024
  3. MILTEFOSINE [Suspect]
     Active Substance: MILTEFOSINE
     Indication: Cutaneous leishmaniasis
     Dosage: FOR 28 DAYS
     Route: 048
     Dates: start: 2024
  4. MILTEFOSINE [Suspect]
     Active Substance: MILTEFOSINE
     Indication: Cutaneous leishmaniasis
     Dosage: FOR 7 DAYS
     Route: 048
     Dates: start: 2024
  5. ASPIRIN [Concomitant]
     Active Substance: ASPIRIN
     Indication: Product used for unknown indication
     Route: 065
  6. PREDNISONE [Suspect]
     Active Substance: PREDNISONE
     Indication: Enterobacter infection
     Route: 048
     Dates: start: 2024, end: 2024

REACTIONS (4)
  - Drug ineffective [Unknown]
  - Vomiting [Recovered/Resolved]
  - Nausea [Recovered/Resolved]
  - Intentional product misuse [Unknown]

NARRATIVE: CASE EVENT DATE: 20240101
